FAERS Safety Report 19037825 (Version 1)
Quarter: 2021Q1

REPORT INFORMATION
  Report Type: Spontaneous
  Country: US (occurrence: US)
  Receive Date: 20210322
  Receipt Date: 20210322
  Transmission Date: 20210420
  Serious: Yes (Disabling)
  Sender: FDA-Public Use
  Company Number: None

PATIENT
  Age: 39 Year
  Sex: Male
  Weight: 83.25 kg

DRUGS (5)
  1. VITAMIN D [Concomitant]
     Active Substance: VITAMIN D NOS
  2. HORNY GOAT WEED [Concomitant]
     Active Substance: HERBALS
  3. FINASTERIDE 1 MG [Suspect]
     Active Substance: FINASTERIDE
     Indication: ALOPECIA
     Dosage: ?          QUANTITY:1 TABLET(S);?
     Route: 048
     Dates: start: 20180914, end: 20190401
  4. PROVIGIL [Concomitant]
     Active Substance: MODAFINIL
  5. ZMA (ZINC MAGNESIUM) [Concomitant]

REACTIONS (3)
  - Ejaculation failure [None]
  - Muscle atrophy [None]
  - Libido decreased [None]

NARRATIVE: CASE EVENT DATE: 20190401
